FAERS Safety Report 23280119 (Version 2)
Quarter: 2023Q4

REPORT INFORMATION
  Report Type: Report from Study
  Country: US (occurrence: US)
  Receive Date: 20231210
  Receipt Date: 20231222
  Transmission Date: 20240109
  Serious: Yes (Other)
  Sender: FDA-Public Use
  Company Number: US-002147023-NVSC2023US256211

PATIENT
  Sex: Female

DRUGS (1)
  1. ENTRESTO [Suspect]
     Active Substance: SACUBITRIL\VALSARTAN
     Indication: Product used for unknown indication
     Dosage: 1 DOSAGE FORM, BID
     Route: 048
     Dates: start: 202311

REACTIONS (7)
  - Atrial fibrillation [Unknown]
  - Visual impairment [Unknown]
  - Weight loss poor [Unknown]
  - Dyspnoea [Unknown]
  - Productive cough [Unknown]
  - Confusional state [Unknown]
  - Disturbance in attention [Unknown]
